FAERS Safety Report 5028908-7 (Version None)
Quarter: 2006Q2

REPORT INFORMATION
  Report Type: 
  Country: None (occurrence: None)
  Receive Date: 20060619
  Receipt Date: 20060614
  Transmission Date: 20061013
  Serious: Yes (Other)
  Sender: FDA-Public Use
  Company Number: US-GLAXOSMITHKLINE-A0609287A

PATIENT
  Age: 51 Year
  Sex: Male

DRUGS (1)
  1. PAXIL [Suspect]
     Indication: MID-LIFE CRISIS
     Route: 048
     Dates: start: 20050101, end: 20050101

REACTIONS (3)
  - CRYING [None]
  - SUICIDAL IDEATION [None]
  - WEIGHT DECREASED [None]
